FAERS Safety Report 22027920 (Version 1)
Quarter: 2023Q1

REPORT INFORMATION
  Report Type: Spontaneous
  Country: US (occurrence: None)
  Receive Date: 20230220
  Receipt Date: 20230220
  Transmission Date: 20230418
  Serious: No
  Sender: FDA-Public Use
  Company Number: None

PATIENT
  Age: 58 Year
  Sex: Female
  Weight: 75.6 kg

DRUGS (6)
  1. HYDROCHLOROTHIAZIDE\TRIAMTERENE [Suspect]
     Active Substance: HYDROCHLOROTHIAZIDE\TRIAMTERENE
     Indication: Hypertension
     Route: 048
     Dates: start: 20221220, end: 20230217
  2. LEVOTHYROXINE [Concomitant]
     Active Substance: LEVOTHYROXINE
  3. MOTRIN [Concomitant]
     Active Substance: IBUPROFEN
  4. VITAMIN A [Concomitant]
     Active Substance: VITAMIN A
  5. BORON [Concomitant]
     Active Substance: BORON
  6. D [Concomitant]

REACTIONS (5)
  - Headache [None]
  - Tremor [None]
  - Heart rate increased [None]
  - Blood pressure increased [None]
  - Product substitution issue [None]

NARRATIVE: CASE EVENT DATE: 20221223
